FAERS Safety Report 7265633-6 (Version None)
Quarter: 2011Q1

REPORT INFORMATION
  Report Type: 
  Country: None (occurrence: None)
  Receive Date: 20110131
  Receipt Date: 20110120
  Transmission Date: 20110831
  Serious: Yes (Hospitalization)
  Sender: FDA-Public Use
  Company Number: AT-BAYER-2010-004663

PATIENT
  Sex: Female

DRUGS (3)
  1. MIRENA [Suspect]
     Indication: CONTRACEPTION
     Dosage: UNK
     Route: 015
     Dates: start: 20100609, end: 20101201
  2. ARTHROTEC [Concomitant]
  3. UNCODEABLE ^UNCLASSIFIABLE^ [Concomitant]

REACTIONS (5)
  - DYSMENORRHOEA [None]
  - VAGINAL HAEMORRHAGE [None]
  - MENORRHAGIA [None]
  - CYST [None]
  - DEVICE EXPULSION [None]
